FAERS Safety Report 11241820 (Version 1)
Quarter: 2015Q3

REPORT INFORMATION
  Report Type: Report from Study
  Country: VE (occurrence: VE)
  Receive Date: 20150706
  Receipt Date: 20150706
  Transmission Date: 20151125
  Serious: Yes (Hospitalization, Other)
  Sender: FDA-Public Use
  Company Number: VE-ABBVIE-15K-178-1420007-00

PATIENT
  Age: 36 Year
  Sex: Female
  Weight: 88 kg

DRUGS (1)
  1. HUMIRA [Suspect]
     Active Substance: ADALIMUMAB
     Indication: RHEUMATOID ARTHRITIS
     Route: 058
     Dates: start: 2012, end: 201505

REACTIONS (4)
  - Staphylococcal infection [Recovering/Resolving]
  - Ovarian cyst [Recovered/Resolved]
  - Respiratory tract infection viral [Not Recovered/Not Resolved]
  - Uterine leiomyoma [Recovering/Resolving]

NARRATIVE: CASE EVENT DATE: 201402
